FAERS Safety Report 6980759-X (Version None)
Quarter: 2010Q3

REPORT INFORMATION
  Report Type: 
  Country: None (occurrence: None)
  Receive Date: 20100914
  Receipt Date: 20100902
  Transmission Date: 20110219
  Serious: Yes (Hospitalization, Other)
  Sender: FDA-Public Use
  Company Number: JP-WATSON-2010-12056

PATIENT
  Age: 79 Year
  Sex: Female

DRUGS (4)
  1. DEXAMETHASONE (WATSON LABORATORIES) [Suspect]
     Indication: MULTIPLE MYELOMA
     Dosage: 8 MG, DAILY
     Dates: start: 20080317, end: 20080320
  2. DEXAMETHASONE (WATSON LABORATORIES) [Suspect]
     Dosage: 8 MG, DAILY
     Dates: start: 20080407, end: 20080410
  3. BORTEZOMIB [Suspect]
     Indication: MULTIPLE MYELOMA
     Dosage: 0.7 MG/MM/DAY
     Dates: start: 20080317, end: 20080320
  4. BORTEZOMIB [Suspect]
     Dosage: 0.7 MG/MM/DAY
     Dates: start: 20080407, end: 20080410

REACTIONS (3)
  - ACUTE MYOCARDIAL INFARCTION [None]
  - CHEST PAIN [None]
  - MYOCARDIAL ISCHAEMIA [None]
